FAERS Safety Report 14081766 (Version 1)
Quarter: 2017Q4

REPORT INFORMATION
  Report Type: Spontaneous
  Country: CA (occurrence: CA)
  Receive Date: 20171013
  Receipt Date: 20171013
  Transmission Date: 20180321
  Serious: Yes (Life-Threatening, Other)
  Sender: FDA-Public Use
  Company Number: CA-PFIZER INC-2017440780

PATIENT
  Age: 60 Year
  Sex: Female

DRUGS (4)
  1. FRAGMIN [Suspect]
     Active Substance: DALTEPARIN SODIUM
     Indication: DEEP VEIN THROMBOSIS
     Dosage: UNK
  2. EPIRUBICIN [Concomitant]
     Active Substance: EPIRUBICIN
     Indication: BREAST CANCER
     Dosage: UNK UNK, WEEKLY
     Dates: start: 201708
  3. METRONIDAZOLE. [Concomitant]
     Active Substance: METRONIDAZOLE
  4. ZOMETA [Concomitant]
     Active Substance: ZOLEDRONIC ACID
     Dosage: UNK
     Dates: start: 201707

REACTIONS (2)
  - Pulmonary embolism [Unknown]
  - Cardio-respiratory arrest [Unknown]

NARRATIVE: CASE EVENT DATE: 201709
